FAERS Safety Report 8272429-5 (Version None)
Quarter: 2012Q2

REPORT INFORMATION
  Report Type: 
  Country: None (occurrence: None)
  Receive Date: 20120410
  Receipt Date: 20120328
  Transmission Date: 20120825
  Serious: Yes (Hospitalization)
  Sender: FDA-Public Use
  Company Number: DK-BAYER-2012-029964

PATIENT
  Age: 55 Year
  Sex: Female

DRUGS (1)
  1. ASPIRIN [Suspect]
     Indication: MUSCULOSKELETAL PAIN
     Dosage: UNKNOWN NUMBER OF DOSE FORMS

REACTIONS (7)
  - COLD SWEAT [None]
  - RESPIRATORY FAILURE [None]
  - TOXICITY TO VARIOUS AGENTS [None]
  - OLIGURIA [None]
  - TACHYPNOEA [None]
  - SENSORY DISTURBANCE [None]
  - NON-CARDIOGENIC PULMONARY OEDEMA [None]
